FAERS Safety Report 16208857 (Version 1)
Quarter: 2019Q2

REPORT INFORMATION
  Report Type: Spontaneous
  Country: US (occurrence: US)
  Receive Date: 20190417
  Receipt Date: 20190417
  Transmission Date: 20190711
  Serious: No
  Sender: FDA-Public Use
  Company Number: US-SA-2019SA101730

PATIENT
  Age: 65 Year
  Sex: Male

DRUGS (2)
  1. MULTAQ [Suspect]
     Active Substance: DRONEDARONE
     Indication: ATRIAL FIBRILLATION
     Dosage: 400 MG, BID
     Route: 065
  2. ELIQUIS [Suspect]
     Active Substance: APIXABAN
     Dosage: UNK UNK, UNK

REACTIONS (4)
  - Muscular weakness [Not Recovered/Not Resolved]
  - Product dose omission [Unknown]
  - Muscle injury [Not Recovered/Not Resolved]
  - Intentional product use issue [Unknown]
